FAERS Safety Report 6742541-8 (Version None)
Quarter: 2010Q2

REPORT INFORMATION
  Report Type: 
  Country: None (occurrence: None)
  Receive Date: 20100526
  Receipt Date: 20100514
  Transmission Date: 20101027
  Serious: Yes (Hospitalization, Other)
  Sender: FDA-Public Use
  Company Number: US-WYE-H15176810

PATIENT
  Sex: Female
  Weight: 86.26 kg

DRUGS (7)
  1. EFFEXOR XR [Suspect]
     Indication: DEPRESSION
     Dosage: ^AROUND 200 MG^
     Route: 048
     Dates: start: 20020101, end: 20040101
  2. EFFEXOR XR [Suspect]
     Dosage: ^TAPERED OFF^
     Route: 048
     Dates: start: 20040101, end: 20040101
  3. EFFEXOR XR [Suspect]
     Dosage: RESTARTED AT 150 MG, AND WAS TITRATED UP TO 375 MG
     Route: 048
     Dates: start: 20040101, end: 20070101
  4. EFFEXOR XR [Suspect]
     Dosage: 4 (75 MG CAPSULES)
     Route: 048
     Dates: start: 20070101, end: 20100301
  5. EFFEXOR XR [Suspect]
     Dosage: 2 (150 MG CAPSULES)
     Route: 048
     Dates: start: 20100301
  6. BISOPROLOL [Concomitant]
     Indication: VENTRICULAR SEPTAL DEFECT
     Dosage: UNKNOWN
     Dates: start: 20060101
  7. XANAX [Concomitant]
     Dosage: UNKNOWN

REACTIONS (14)
  - CONDITION AGGRAVATED [None]
  - DEPRESSION [None]
  - DISORIENTATION [None]
  - DISTURBANCE IN ATTENTION [None]
  - DIZZINESS [None]
  - DRUG WITHDRAWAL SYNDROME [None]
  - MALAISE [None]
  - MEDICATION RESIDUE [None]
  - PANIC ATTACK [None]
  - PARAESTHESIA [None]
  - PRODUCT QUALITY ISSUE [None]
  - STRESS [None]
  - TREMOR [None]
  - VITAMIN D DEFICIENCY [None]
